FAERS Safety Report 7241805-1 (Version None)
Quarter: 2011Q1

REPORT INFORMATION
  Report Type: 
  Country: None (occurrence: None)
  Receive Date: 20110114
  Receipt Date: 20110104
  Transmission Date: 20110831
  Serious: Yes (Hospitalization, Other)
  Sender: FDA-Public Use
  Company Number: JHP201100002

PATIENT
  Age: 31 Year
  Sex: Female

DRUGS (2)
  1. XYLOCAINE [Concomitant]
  2. ADRENALIN CHLORIDE SOLUTION (EPINEPHRINE) INJECTION, 1MG/ML [Suspect]
     Dosage: 1:100,000 INFILTRATION INTO NASAL MUCOSA

REACTIONS (5)
  - STRESS CARDIOMYOPATHY [None]
  - TROPONIN T INCREASED [None]
  - MYOCARDIAL OEDEMA [None]
  - ELECTROCARDIOGRAM T WAVE INVERSION [None]
  - VENTRICULAR TACHYCARDIA [None]
